FAERS Safety Report 15227751 (Version 2)
Quarter: 2018Q3

REPORT INFORMATION
  Report Type: Spontaneous
  Country: CH (occurrence: CH)
  Receive Date: 20180801
  Receipt Date: 20180801
  Transmission Date: 20181010
  Serious: Yes (Other)
  Sender: FDA-Public Use
  Company Number: PHHY2018CH049871

PATIENT
  Age: 39 Year
  Sex: Male

DRUGS (43)
  1. RITUXIMAB. [Suspect]
     Active Substance: RITUXIMAB
     Indication: PRODUCT USED FOR UNKNOWN INDICATION
     Dosage: DOSAGE UNKNOWN
     Route: 037
     Dates: start: 20180406, end: 20180410
  2. RITUXIMAB. [Suspect]
     Active Substance: RITUXIMAB
     Dosage: DOSAGE UNKNOWN
     Route: 037
     Dates: start: 20180428, end: 20180502
  3. RITUXIMAB. [Suspect]
     Active Substance: RITUXIMAB
     Dosage: DOSAGE UNKOWN
     Route: 037
     Dates: start: 20180524, end: 20180529
  4. METHOTREXATE. [Suspect]
     Active Substance: METHOTREXATE
     Dosage: DOSAGE UNKNOWN
     Route: 037
     Dates: start: 20180428, end: 20180502
  5. DOXORUBICIN [Suspect]
     Active Substance: DOXORUBICIN
     Dosage: DOSAGE UNKNOWN
     Route: 037
     Dates: start: 20180406, end: 20180410
  6. ETOPOSIDE. [Suspect]
     Active Substance: ETOPOSIDE
     Dosage: DOSAGE UNKNOWN
     Route: 037
     Dates: start: 20180428, end: 20180502
  7. METHOTREXATE. [Suspect]
     Active Substance: METHOTREXATE
     Dosage: DOSAGE UNKNOWN
     Route: 037
     Dates: start: 20180618
  8. ONCOVIN [Suspect]
     Active Substance: VINCRISTINE SULFATE
     Dosage: DOSAGE UNKNOWN
     Route: 037
     Dates: start: 20180524, end: 20180529
  9. PREDNISONE. [Suspect]
     Active Substance: PREDNISONE
     Indication: PRODUCT USED FOR UNKNOWN INDICATION
     Dosage: DOSAGE UNKNOWN
     Route: 065
     Dates: start: 20180313
  10. CYCLOPHOSPHAMIDE. [Suspect]
     Active Substance: CYCLOPHOSPHAMIDE
     Indication: PRODUCT USED FOR UNKNOWN INDICATION
     Dosage: BRAND UNKNOWN
     Route: 037
     Dates: start: 20180313, end: 20180318
  11. CYCLOPHOSPHAMIDE. [Suspect]
     Active Substance: CYCLOPHOSPHAMIDE
     Dosage: DOSAGE UNKNOWN
     Route: 037
     Dates: start: 20180406, end: 20180410
  12. METHYLPREDNISOLONE. [Suspect]
     Active Substance: METHYLPREDNISOLONE
     Dosage: DOSAGE UNKOWN
     Route: 037
     Dates: start: 20180428, end: 20180502
  13. CYCLOPHOSPHAMIDE. [Suspect]
     Active Substance: CYCLOPHOSPHAMIDE
     Dosage: DOSAGE UNKOWN
     Route: 037
     Dates: start: 20180618
  14. DOXORUBICIN [Suspect]
     Active Substance: DOXORUBICIN
     Dosage: DOSAGE UNKNOWN
     Route: 037
     Dates: start: 20180428, end: 20180502
  15. ETOPOSIDE. [Suspect]
     Active Substance: ETOPOSIDE
     Dosage: DOSAGE UNKNOWN
     Route: 037
     Dates: start: 20180406, end: 20180410
  16. CYTARABINE. [Suspect]
     Active Substance: CYTARABINE
     Indication: PRODUCT USED FOR UNKNOWN INDICATION
     Dosage: DOSAGE UNLNOWN
     Route: 037
     Dates: start: 20180406, end: 20180410
  17. CYTARABINE. [Suspect]
     Active Substance: CYTARABINE
     Dosage: UNK
     Route: 037
     Dates: start: 20180618
  18. ONCOVIN [Suspect]
     Active Substance: VINCRISTINE SULFATE
     Indication: PRODUCT USED FOR UNKNOWN INDICATION
     Dosage: DOSAGE UNKNOWN
     Route: 037
     Dates: start: 20180313, end: 20180318
  19. METHYLPREDNISOLONE. [Suspect]
     Active Substance: METHYLPREDNISOLONE
     Dosage: DOSAGE UNKNOWN
     Route: 037
     Dates: start: 20180524, end: 20180529
  20. BACTRIM [Suspect]
     Active Substance: SULFAMETHOXAZOLE\TRIMETHOPRIM
     Indication: PRODUCT USED FOR UNKNOWN INDICATION
     Dosage: DOSAGE UNKNOWN
     Route: 065
     Dates: start: 201803, end: 20180523
  21. CYCLOPHOSPHAMIDE. [Suspect]
     Active Substance: CYCLOPHOSPHAMIDE
     Dosage: DOSAGE UNKNOWN
     Route: 037
     Dates: start: 20180428, end: 20180502
  22. CYTARABINE. [Suspect]
     Active Substance: CYTARABINE
     Dosage: DOSAGE UNKNOWN
     Route: 037
     Dates: start: 20180524, end: 20180529
  23. PREDNISONE. [Suspect]
     Active Substance: PREDNISONE
     Dosage: DOSAGE UNKNOWN
     Route: 065
     Dates: start: 20180318
  24. PREDNISOLONE. [Suspect]
     Active Substance: PREDNISOLONE
     Dosage: DOSAGE UNKNOWN
     Route: 037
     Dates: start: 20180524, end: 20180529
  25. CYCLOPHOSPHAMIDE. [Suspect]
     Active Substance: CYCLOPHOSPHAMIDE
     Dosage: DOSAGE UNKNOWN
     Route: 037
     Dates: start: 20180524, end: 20180529
  26. DOXORUBICIN [Suspect]
     Active Substance: DOXORUBICIN
     Dosage: DOSAGE UNKNOWN
     Route: 037
     Dates: start: 20180618
  27. METHOTREXATE. [Suspect]
     Active Substance: METHOTREXATE
     Indication: PRODUCT USED FOR UNKNOWN INDICATION
     Dosage: DOSAGE UNKNOWN
     Route: 037
     Dates: start: 20180406, end: 20180410
  28. METHYLPREDNISOLONE. [Suspect]
     Active Substance: METHYLPREDNISOLONE
     Indication: PRODUCT USED FOR UNKNOWN INDICATION
     Dosage: DOSAGE UNLNOWN
     Route: 037
     Dates: start: 20180406, end: 20180410
  29. METHYLPREDNISOLONE. [Suspect]
     Active Substance: METHYLPREDNISOLONE
     Dosage: UNK
     Route: 037
     Dates: start: 20180618
  30. DOXORUBICIN [Suspect]
     Active Substance: DOXORUBICIN
     Indication: PRODUCT USED FOR UNKNOWN INDICATION
     Dosage: DOSAGE UNKNOWN
     Route: 037
     Dates: start: 20180313, end: 20180318
  31. DOXORUBICIN [Suspect]
     Active Substance: DOXORUBICIN
     Dosage: DOSAGE UNKNOWN
     Route: 037
     Dates: start: 20180524, end: 20180529
  32. ETOPOSIDE. [Suspect]
     Active Substance: ETOPOSIDE
     Dosage: DOSAGE UNKNOWN
     Route: 037
     Dates: start: 20180524, end: 20180529
  33. ETOPOSIDE. [Suspect]
     Active Substance: ETOPOSIDE
     Dosage: DOSAGE UNKNOWN
     Route: 037
     Dates: start: 20180618
  34. CYTARABINE. [Suspect]
     Active Substance: CYTARABINE
     Dosage: DOSAGE UNKOWN
     Route: 037
     Dates: start: 20180428, end: 20180502
  35. ONCOVIN [Suspect]
     Active Substance: VINCRISTINE SULFATE
     Dosage: DOSAGE UNKNOWN
     Route: 037
     Dates: start: 20180428, end: 20180502
  36. ONCOVIN [Suspect]
     Active Substance: VINCRISTINE SULFATE
     Dosage: DOSAGE UNKNOWN
     Route: 037
     Dates: start: 20180618
  37. PREDNISOLONE. [Suspect]
     Active Substance: PREDNISOLONE
     Indication: PRODUCT USED FOR UNKNOWN INDICATION
     Dosage: DOSAGE UNKNOWN
     Route: 037
     Dates: start: 20180406, end: 20180410
  38. PREDNISOLONE. [Suspect]
     Active Substance: PREDNISOLONE
     Dosage: DOSAGE UNKNOWN
     Route: 037
     Dates: start: 20180428, end: 20180502
  39. PREDNISOLONE. [Suspect]
     Active Substance: PREDNISOLONE
     Dosage: DOSAGE UNKNOWN
     Route: 037
     Dates: start: 20180618
  40. ETOPOSIDE. [Suspect]
     Active Substance: ETOPOSIDE
     Indication: PRODUCT USED FOR UNKNOWN INDICATION
     Dosage: DOSAGE UNKNOWN
     Route: 037
     Dates: start: 20180313, end: 20180318
  41. RITUXIMAB. [Suspect]
     Active Substance: RITUXIMAB
     Dosage: DOSAGE UNKNOWN
     Route: 037
     Dates: start: 20180618
  42. METHOTREXATE. [Suspect]
     Active Substance: METHOTREXATE
     Dosage: DOSAGE UNKNOWN
     Route: 037
     Dates: start: 20180524, end: 20180529
  43. ONCOVIN [Suspect]
     Active Substance: VINCRISTINE SULFATE
     Dosage: DOSAGE UNKNOWN
     Route: 037
     Dates: start: 20180406, end: 20180410

REACTIONS (1)
  - Hepatic enzyme increased [Not Recovered/Not Resolved]

NARRATIVE: CASE EVENT DATE: 201804
